FAERS Safety Report 9027118 (Version 1)
Quarter: 2013Q1

REPORT INFORMATION
  Report Type: Spontaneous
  Country: IT (occurrence: IT)
  Receive Date: 20130123
  Receipt Date: 20130123
  Transmission Date: 20140127
  Serious: Yes (Life-Threatening)
  Sender: FDA-Public Use
  Company Number: IT-JHP PHARMACEUTICALS, LLC-JHP201300017

PATIENT
  Age: 36 Year
  Sex: Female

DRUGS (4)
  1. ADRENALIN [Suspect]
     Indication: ASTHMA
     Dosage: 1 ML, UNK
     Route: 030
     Dates: start: 20120528, end: 20120528
  2. METHYLPREDNISOLONE [Suspect]
     Indication: ASTHMA
     Dosage: 2 G, UNK
     Route: 042
     Dates: start: 20120528
  3. METHYLPREDNISOLONE [Suspect]
     Dosage: 1 G, DAILY
     Route: 042
  4. ALBUTEROL [Suspect]
     Indication: ASTHMA
     Dosage: 1 FL
     Route: 042
     Dates: start: 201205

REACTIONS (2)
  - Drug ineffective [Recovered/Resolved]
  - Exposure during pregnancy [Recovered/Resolved]
